FAERS Safety Report 7089968-5 (Version None)
Quarter: 2010Q4

REPORT INFORMATION
  Report Type: 
  Country: None (occurrence: None)
  Receive Date: 20101109
  Receipt Date: 20101103
  Transmission Date: 20110411
  Serious: Yes (Other)
  Sender: FDA-Public Use
  Company Number: US-SHIRE-SPV1-2010-01909

PATIENT
  Age: 6 Year
  Sex: Female

DRUGS (1)
  1. DAYTRANA [Suspect]
     Indication: PRODUCT USED FOR UNKNOWN INDICATION
     Dosage: 10 MG, ONE DOSE
     Route: 062
     Dates: start: 20060724, end: 20060724

REACTIONS (2)
  - AGGRESSION [None]
  - SUICIDAL IDEATION [None]
